FAERS Safety Report 16509770 (Version 1)
Quarter: 2019Q3

REPORT INFORMATION
  Report Type: Spontaneous
  Country: US (occurrence: US)
  Receive Date: 20190701
  Receipt Date: 20190701
  Transmission Date: 20191004
  Serious: Yes (Death, Life-Threatening, Hospitalization)
  Sender: FDA-Public Use
  Company Number: None

PATIENT
  Age: 73 Year
  Sex: Male

DRUGS (3)
  1. LOVENOX [Concomitant]
     Active Substance: ENOXAPARIN SODIUM
  2. WARFARIN [Suspect]
     Active Substance: WARFARIN
     Indication: DEEP VEIN THROMBOSIS
  3. WARFARIN [Suspect]
     Active Substance: WARFARIN
     Indication: ATRIAL FIBRILLATION

REACTIONS (8)
  - Deep vein thrombosis [None]
  - Cardiac arrest [None]
  - Clostridium difficile infection [None]
  - Tracheostomy [None]
  - Pulmonary embolism [None]
  - Intraventricular haemorrhage [None]
  - Acute respiratory failure [None]
  - Hydrocephalus [None]

NARRATIVE: CASE EVENT DATE: 20190114
